FAERS Safety Report 13272951 (Version 8)
Quarter: 2017Q2

REPORT INFORMATION
  Report Type: Report from Study
  Country: US (occurrence: US)
  Receive Date: 20170227
  Receipt Date: 20170615
  Transmission Date: 20170830
  Serious: Yes (Other)
  Sender: FDA-Public Use
  Company Number: US-PFIZER INC-2017077533

PATIENT
  Age: 57 Year
  Sex: Female

DRUGS (2)
  1. IBRANCE [Suspect]
     Active Substance: PALBOCICLIB
     Indication: BREAST CANCER
     Dosage: 125 MG, CYCLIC (DAILY FOR 3 WEEKS ON)
     Route: 048
     Dates: start: 20170215, end: 20170605
  2. FASLODEX [Suspect]
     Active Substance: FULVESTRANT
     Dosage: UNK
     Dates: end: 20170605

REACTIONS (12)
  - Cough [Unknown]
  - Rash [Unknown]
  - Breast haemorrhage [Unknown]
  - Fatigue [Recovering/Resolving]
  - Staphylococcal infection [Recovering/Resolving]
  - Neoplasm progression [Unknown]
  - Drug dose omission [Unknown]
  - Platelet count increased [Unknown]
  - Bacterial infection [Recovered/Resolved]
  - Mastitis [Unknown]
  - Breast pain [Unknown]
  - Pyrexia [Unknown]

NARRATIVE: CASE EVENT DATE: 2017
